FAERS Safety Report 12284484 (Version 1)
Quarter: 2016Q2

REPORT INFORMATION
  Report Type: Spontaneous
  Country: US (occurrence: US)
  Receive Date: 20160420
  Receipt Date: 20160420
  Transmission Date: 20160815
  Serious: No
  Sender: FDA-Public Use
  Company Number: US-TEVA-624643USA

PATIENT
  Sex: Female

DRUGS (1)
  1. PREFEST [Suspect]
     Active Substance: ESTRADIOL\NORGESTIMATE
     Indication: MENOPAUSAL SYMPTOMS
     Dosage: 1 MG / 1 MG / 0.09 MG
     Dates: start: 2006

REACTIONS (5)
  - Menopausal symptoms [Recovered/Resolved]
  - Emotional disorder [Unknown]
  - Muscle spasms [Unknown]
  - Arthralgia [Unknown]
  - Hot flush [Unknown]

NARRATIVE: CASE EVENT DATE: 2015
